FAERS Safety Report 23230707 (Version 2)
Quarter: 2024Q4

REPORT INFORMATION
  Report Type: Spontaneous
  Country: US (occurrence: US)
  Receive Date: 20231127
  Receipt Date: 20241110
  Transmission Date: 20250114
  Serious: No
  Sender: SANOFI AVENTIS
  Company Number: US-SA-SAC20231120000219

PATIENT
  Age: 26 Year
  Sex: Female

DRUGS (7)
  1. DUPIXENT [Suspect]
     Active Substance: DUPILUMAB
     Indication: Asthma
     Dosage: 300 MG, QOW
     Route: 058
     Dates: start: 20221216
  2. CELECOXIB [Concomitant]
     Active Substance: CELECOXIB
  3. FLUCONAZOLE [Concomitant]
     Active Substance: FLUCONAZOLE
  4. PANTOPRAZOLE [Concomitant]
     Active Substance: PANTOPRAZOLE
  5. RIZATRIPTAN [Concomitant]
     Active Substance: RIZATRIPTAN
  6. XHANCE [Concomitant]
     Active Substance: FLUTICASONE PROPIONATE
  7. TRI-LO-MARZIA [Concomitant]
     Active Substance: ETHINYL ESTRADIOL\NORGESTIMATE

REACTIONS (3)
  - Quality of life decreased [Unknown]
  - Rosacea [Unknown]
  - Erythema [Unknown]
